FAERS Safety Report 6490893-9 (Version None)
Quarter: 2009Q4

REPORT INFORMATION
  Report Type: 
  Country: None (occurrence: None)
  Receive Date: 20091211
  Receipt Date: 20091201
  Transmission Date: 20100525
  Serious: Yes (Other)
  Sender: FDA-Public Use
  Company Number: FR-WATSON-2009-10282

PATIENT
  Sex: Male

DRUGS (6)
  1. OXAZEPAM (WATSON LABORATORIES) [Suspect]
     Indication: DRUG USE FOR UNKNOWN INDICATION
     Dosage: UNK
  2. CITALOPRAM HYDROBROMIDE [Suspect]
     Indication: DRUG USE FOR UNKNOWN INDICATION
     Dosage: UNK
  3. VALPROIC ACID [Suspect]
     Indication: DRUG USE FOR UNKNOWN INDICATION
  4. CYAMEMAZINE [Suspect]
     Indication: DRUG USE FOR UNKNOWN INDICATION
  5. TRIMEPRAZINE TAB [Suspect]
     Indication: DRUG USE FOR UNKNOWN INDICATION
  6. ALCOHOL                            /00002101/ [Suspect]
     Indication: ALCOHOLISM

REACTIONS (1)
  - HYPONATRAEMIA [None]
